FAERS Safety Report 24035501 (Version 1)
Quarter: 2024Q3

REPORT INFORMATION
  Report Type: Report from Study
  Country: JP (occurrence: None)
  Receive Date: 20240701
  Receipt Date: 20240701
  Transmission Date: 20241017
  Serious: Yes (Death)
  Sender: ASTRAZENECA
  Company Number: 2024A147582

PATIENT
  Age: 57 Year
  Sex: Female

DRUGS (1)
  1. CILGAVIMAB\TIXAGEVIMAB [Suspect]
     Active Substance: CILGAVIMAB\TIXAGEVIMAB
     Indication: COVID-19 prophylaxis
     Dosage: 1 SET
     Route: 030

REACTIONS (5)
  - COVID-19 [Fatal]
  - COVID-19 pneumonia [Fatal]
  - Renal impairment [Fatal]
  - Azotaemia [Fatal]
  - Drug ineffective [Fatal]
